FAERS Safety Report 5818897-7 (Version None)
Quarter: 2008Q3

REPORT INFORMATION
  Report Type: 
  Country: None (occurrence: None)
  Receive Date: 20080717
  Receipt Date: 20080703
  Transmission Date: 20090109
  Serious: Yes (Other)
  Sender: FDA-Public Use
  Company Number: 2008S1011675

PATIENT
  Age: 56 Year
  Sex: Male
  Weight: 96 kg

DRUGS (1)
  1. TEMERIT (NEBIVOLOL) [Suspect]
     Indication: HYPERTENSION
     Dosage: ORAL
     Route: 048
     Dates: start: 20071204, end: 20080609

REACTIONS (2)
  - HYPERPROLACTINAEMIA [None]
  - NIPPLE PAIN [None]
